FAERS Safety Report 10168724 (Version 1)
Quarter: 2014Q2

REPORT INFORMATION
  Report Type: Spontaneous
  Country: FR (occurrence: None)
  Receive Date: 20140509
  Receipt Date: 20140509
  Transmission Date: 20141212
  Serious: Yes (Hospitalization)
  Sender: FDA-Public Use
  Company Number: 7290115

PATIENT
  Age: 86 Year
  Sex: Male

DRUGS (9)
  1. LEVOTHYROX (LEVOTHYROXINE SODIUM) (50 MICROGRAM, TABLET) (LEVOTHYROXINE SODIUM) [Suspect]
     Indication: PRODUCT USED FOR UNKNOWN INDICATION
     Route: 048
  2. NOZINAN /00038601/ (LEVOMEPROMAZINE) (4 PERCENT, ORAL SOLUTION) (LEVOMEPROMAZINE) [Suspect]
     Indication: PRODUCT USED FOR UNKNOWN INDICATION
     Route: 048
  3. THERALENE (ALIMEMAZINE TARTRATE) (4 PERCENT, ORAL SOLUTION) (ALIMEMAZINE TARTRATE) [Suspect]
     Indication: PRODUCT USED FOR UNKNOWN INDICATION
     Route: 048
  4. SEROPLEX (ESCITALOPRAM OXALATE) (20 MG, FILM-COATED TABLET) (ESCITALOPRAM OXALATE) [Suspect]
     Indication: PRODUCT USED FOR UNKNOWN INDICATION
     Route: 048
  5. PARIET (RABEPRAZOLE SODIUM) (20 MG, GASTRO-RESISTANT TABLET) (RABEPRAZOLE SODIUM) [Suspect]
     Indication: PRODUCT USED FOR UNKNOWN INDICATION
     Route: 048
  6. PLAVIX /01220701/ (CLOPIDOGREL) (75 MG, FILM-COATED TABLET) (CLOPIDOGREAL) [Suspect]
     Indication: PRODUCT USED FOR UNKNOWN INDICATION
     Route: 048
  7. SERESTA (OXAZEPAM) (50 MG, TABLET) (OXAZEPAM) [Suspect]
     Indication: PRODUCT USED FOR UNKNOWN INDICATION
     Dosage: 10 MG, MORNING, 10 MG NOON, 25 MG EVENING
     Route: 048
  8. ZOLPIDEM (ZOLPIDEM) (ZOLPIDEM) [Suspect]
     Indication: PRODUCT USED FOR UNKNOWN INDICATION
     Route: 048
  9. LOXEN (NICARDIPINE HYDROCHLORIDE) (20 MG, TABLET) (NICARDIPINE HYDROCHLORIDE) [Suspect]
     Indication: PRODUCT USED FOR UNKNOWN INDICATION
     Route: 048

REACTIONS (1)
  - Urinary retention [None]
